FAERS Safety Report 7006243-5 (Version None)
Quarter: 2010Q3

REPORT INFORMATION
  Report Type: 
  Country: None (occurrence: None)
  Receive Date: 20100921
  Receipt Date: 20100908
  Transmission Date: 20110219
  Serious: No
  Sender: FDA-Public Use
  Company Number: US-PFIZER INC-2010096255

PATIENT
  Sex: Female
  Weight: 88 kg

DRUGS (6)
  1. NEURONTIN [Suspect]
     Indication: NEURALGIA
     Dosage: 850 MG, 2X/DAY
     Route: 048
     Dates: start: 19990101
  2. GABAPENTIN [Suspect]
     Indication: NEURALGIA
     Dosage: 850 MG, 2X/DAY
     Route: 048
     Dates: start: 20100701
  3. TOPROL-XL [Concomitant]
     Indication: HYPERTENSION
     Dosage: UNK
  4. COZAAR [Concomitant]
     Indication: HYPERTENSION
     Dosage: UNK
  5. RELAFEN [Concomitant]
     Indication: ARTHRITIS
     Dosage: UNK
  6. WARFARIN [Concomitant]
     Dosage: UNK

REACTIONS (5)
  - ABDOMINAL DISCOMFORT [None]
  - DRUG INEFFECTIVE [None]
  - DYSGEUSIA [None]
  - ERUCTATION [None]
  - PARAESTHESIA [None]
